FAERS Safety Report 23648263 (Version 1)
Quarter: 2024Q1

REPORT INFORMATION
  Report Type: Spontaneous
  Country: GB (occurrence: GB)
  Receive Date: 20240319
  Receipt Date: 20240319
  Transmission Date: 20240410
  Serious: Yes (Other)
  Sender: FDA-Public Use
  Company Number: None

PATIENT
  Age: 33 Year
  Sex: Male
  Weight: 70 kg

DRUGS (2)
  1. OFLOXACIN [Suspect]
     Active Substance: OFLOXACIN
     Indication: Epididymitis
     Dosage: 400 MG TWICE A DAY, DURATION: 7 DAYS
     Route: 065
     Dates: start: 20230904, end: 20230911
  2. DOXYCYCLINE [Concomitant]
     Active Substance: DOXYCYCLINE
     Indication: Epididymitis
     Dosage: DURATION: 10 DAYS
     Dates: start: 20230915, end: 20230925

REACTIONS (2)
  - Tendon injury [Not Recovered/Not Resolved]
  - Medication error [Unknown]

NARRATIVE: CASE EVENT DATE: 20231101
